FAERS Safety Report 17041662 (Version 1)
Quarter: 2019Q4

REPORT INFORMATION
  Report Type: Spontaneous
  Country: UY (occurrence: UY)
  Receive Date: 20191118
  Receipt Date: 20191118
  Transmission Date: 20200122
  Serious: Yes (Other)
  Sender: FDA-Public Use
  Company Number: UY-ROCHE-2465769

PATIENT
  Age: 85 Year
  Sex: Male

DRUGS (3)
  1. COTELLIC [Suspect]
     Active Substance: COBIMETINIB
     Indication: MALIGNANT MELANOMA
     Dosage: 3 TABLETS EVERY DAY IN THE AFTERNOON
     Route: 065
     Dates: start: 201907
  2. ZELBORAF [Suspect]
     Active Substance: VEMURAFENIB
     Indication: MALIGNANT MELANOMA
     Dosage: 8 TABLETS PER DAY, 4 TABLETS IN THE MORNING AND 4 TABLETS IN THE AFTERNOON
     Route: 065
     Dates: start: 201907
  3. ZELBORAF [Suspect]
     Active Substance: VEMURAFENIB
     Dosage: 4 TABLETS PER DAY, 2 TABLETS IN THE MORNING AND 2 TABLETS IN THE AFTERNOON
     Route: 065

REACTIONS (5)
  - Inflammation [Not Recovered/Not Resolved]
  - Skin reaction [Not Recovered/Not Resolved]
  - Diarrhoea [Not Recovered/Not Resolved]
  - Blood potassium decreased [Not Recovered/Not Resolved]
  - Skin discolouration [Not Recovered/Not Resolved]
